FAERS Safety Report 9434810 (Version 3)
Quarter: 2014Q1

REPORT INFORMATION
  Report Type: Spontaneous
  Country: DK (occurrence: FR)
  Receive Date: 20130801
  Receipt Date: 20140116
  Transmission Date: 20141002
  Serious: Yes (Life-Threatening, Hospitalization)
  Sender: FDA-Public Use
  Company Number: FR-FRI-1000047327

PATIENT
  Age: 86 Year
  Sex: Female

DRUGS (14)
  1. ESCITALOPRAM [Suspect]
     Indication: DEPRESSION
     Route: 048
     Dates: end: 20130629
  2. PLAVIX [Suspect]
     Indication: THROMBOSIS PROPHYLAXIS
     Dosage: 1 DF
     Route: 048
  3. RAMIPRIL [Concomitant]
  4. FUROSEMIDE [Concomitant]
  5. DIFFU K [Concomitant]
  6. NORSET [Concomitant]
  7. IMOVANE [Concomitant]
  8. LEXOMIL [Concomitant]
  9. TRAMADOL [Concomitant]
  10. PARACETAMOL [Concomitant]
  11. DICLOFENAC [Concomitant]
  12. ARANESP [Concomitant]
  13. MOVICOL [Concomitant]
  14. UVEDOSE [Concomitant]

REACTIONS (2)
  - Subdural haematoma [Recovered/Resolved]
  - Haematoma [Recovered/Resolved]
